FAERS Safety Report 7237337-7 (Version None)
Quarter: 2011Q1

REPORT INFORMATION
  Report Type: 
  Country: None (occurrence: None)
  Receive Date: 20110118
  Receipt Date: 20110103
  Transmission Date: 20110831
  Serious: Yes (Other)
  Sender: FDA-Public Use
  Company Number: MC201000331

PATIENT
  Age: 71 Year
  Sex: Female
  Weight: 77.1 kg

DRUGS (1)
  1. ANGIOMAX [Suspect]
     Indication: ACUTE CORONARY SYNDROME
     Dosage: 60 MG, BOLUS, INTRAVENOUS; INTRAVENOUS
     Route: 042
     Dates: start: 20101029, end: 20101029

REACTIONS (5)
  - DRUG RESISTANCE [None]
  - THROMBOSIS IN DEVICE [None]
  - CORONARY ARTERY OCCLUSION [None]
  - COAGULATION TIME SHORTENED [None]
  - COAGULATION TIME ABNORMAL [None]
